FAERS Safety Report 20510107 (Version 1)
Quarter: 2022Q1

REPORT INFORMATION
  Report Type: Report from Study
  Country: US (occurrence: US)
  Receive Date: 20220224
  Receipt Date: 20220224
  Transmission Date: 20220423
  Serious: Yes (Hospitalization, Other)
  Sender: FDA-Public Use
  Company Number: US-ABBVIE-22K-163-4285842-00

PATIENT
  Age: 71 Year
  Sex: Female
  Weight: 68.100 kg

DRUGS (7)
  1. HUMIRA [Suspect]
     Active Substance: ADALIMUMAB
     Indication: Ankylosing spondylitis
     Route: 058
     Dates: start: 201202
  2. MANNITOL [Suspect]
     Active Substance: MANNITOL
     Indication: Product used for unknown indication
     Route: 065
  3. PFIZER-BIONTECH COVID-19 VACCINE [Concomitant]
     Active Substance: TOZINAMERAN
     Indication: COVID-19 immunisation
     Dosage: 1ST DOSE
     Route: 030
     Dates: start: 20210225, end: 20210225
  4. PFIZER-BIONTECH COVID-19 VACCINE [Concomitant]
     Active Substance: TOZINAMERAN
     Dosage: 2ND DOSE
     Route: 030
     Dates: start: 20210318, end: 20210318
  5. PFIZER-BIONTECH COVID-19 VACCINE [Concomitant]
     Active Substance: TOZINAMERAN
     Dosage: BOOSTER DOSE
     Route: 030
     Dates: start: 20210818, end: 20210818
  6. PFIZER-BIONTECH COVID-19 VACCINE [Concomitant]
     Active Substance: TOZINAMERAN
     Dosage: 1ST DOSE
     Route: 030
     Dates: start: 20210225, end: 20210225
  7. LOSARTAN [Concomitant]
     Active Substance: LOSARTAN
     Indication: Blood pressure measurement

REACTIONS (9)
  - Sepsis [Recovered/Resolved]
  - Arthropod bite [Recovered/Resolved]
  - Pneumonia [Recovered/Resolved]
  - Laboratory test abnormal [Recovering/Resolving]
  - Blood sodium decreased [Recovered/Resolved]
  - Ankylosing spondylitis [Unknown]
  - Blood sodium decreased [Recovering/Resolving]
  - Dizziness [Recovering/Resolving]
  - Platelet count increased [Recovering/Resolving]

NARRATIVE: CASE EVENT DATE: 20210501
